FAERS Safety Report 10949240 (Version 2)
Quarter: 2015Q2

REPORT INFORMATION
  Report Type: Spontaneous
  Country: US (occurrence: US)
  Receive Date: 20150324
  Receipt Date: 20150415
  Transmission Date: 20150821
  Serious: Yes (Other)
  Sender: FDA-Public Use
  Company Number: US-PFIZER INC-2015092764

PATIENT
  Age: 44 Year
  Sex: Female
  Weight: 122 kg

DRUGS (17)
  1. VICKS NYQUIL [Interacting]
     Active Substance: ACETAMINOPHEN\DEXTROMETHORPHAN HYDROBROMIDE\DOXYLAMINE SUCCINATE
     Indication: COUGH
     Dosage: 30 ML, UNK
     Route: 048
  2. VICKS NYQUIL [Interacting]
     Active Substance: ACETAMINOPHEN\DEXTROMETHORPHAN HYDROBROMIDE\DOXYLAMINE SUCCINATE
     Indication: INSOMNIA
     Dosage: 10 OR 20 MG AT NIGHT (ONCE)
     Dates: start: 201412
  3. DAYQUIL COUGH [Concomitant]
     Indication: COUGH
     Dosage: 15 ML, 1X/DAY
     Dates: start: 20141207, end: 20141207
  4. DAYQUIL COUGH [Concomitant]
     Dosage: UNK
     Dates: start: 20141212, end: 20141212
  5. ROBITUSSIN COUGH AND CONGESTION DM [Concomitant]
     Indication: COUGH
  6. ROBITUSSIN PEAK COLD MAXIMUM STRENGTH MULTI-SYMPTOM COLD [Interacting]
     Active Substance: DEXTROMETHORPHAN HYDROBROMIDE\GUAIFENESIN\PHENYLEPHRINE HYDROCHLORIDE
     Indication: PRODUCTIVE COUGH
     Dosage: UNK (4-10 ML EVERY 4-6 HOURS)
     Dates: start: 201412
  7. TOPAMAX [Concomitant]
     Active Substance: TOPIRAMATE
     Dosage: NEUROLOGIST STOPPED THE 100 MG ON 04MAR2015 BUT SHE TOOK 1/2 TABLET OF 200 MG IN THE MORNING
     Dates: start: 1988
  8. VIMPAT [Concomitant]
     Active Substance: LACOSAMIDE
     Dosage: 150 MG, UNK
  9. DAYQUIL COUGH [Concomitant]
     Indication: SEASONAL ALLERGY
     Dosage: 1 TABLET EVERY 4 HOURS
  10. ROBITUSSIN PEAK COLD MAXIMUM STRENGTH MULTI-SYMPTOM COLD [Suspect]
     Active Substance: DEXTROMETHORPHAN HYDROBROMIDE\GUAIFENESIN\PHENYLEPHRINE HYDROCHLORIDE
     Indication: NASAL CONGESTION
     Dosage: 15 ML, 3X/DAY
     Route: 048
     Dates: start: 20141208, end: 20141208
  11. ROBITUSSIN COUGH AND CONGESTION DM [Concomitant]
     Indication: PRODUCTIVE COUGH
     Dosage: 10 MG, 4X/DAY
     Dates: start: 201402
  12. CLOBAZAM [Concomitant]
     Active Substance: CLOBAZAM
     Dosage: UNK
     Dates: start: 200003
  13. ROBITUSSIN PEAK COLD MAXIMUM STRENGTH MULTI-SYMPTOM COLD [Interacting]
     Active Substance: DEXTROMETHORPHAN HYDROBROMIDE\GUAIFENESIN\PHENYLEPHRINE HYDROCHLORIDE
     Indication: RESPIRATORY TRACT CONGESTION
  14. ROBITUSSIN NIGHT TIME COUGH DM [Concomitant]
     Indication: COUGH
     Dosage: 10 OR 20 MG BEFORE BED TIME
     Dates: start: 201412
  15. ACETAMINOPHEN. [Concomitant]
     Active Substance: ACETAMINOPHEN
     Indication: HEADACHE
     Dosage: UNK (1 OR 2 EACH TIME THAT I TAKE ONE)
  16. ESLICARBAZEPINE ACETATE [Concomitant]
     Active Substance: ESLICARBAZEPINE ACETATE
     Dosage: UNK
  17. APTIOM [Concomitant]
     Active Substance: ESLICARBAZEPINE ACETATE
     Dosage: 400 MG, UNK (1200 MG TOTAL)

REACTIONS (3)
  - Seizure [Recovered/Resolved]
  - Drug interaction [Unknown]
  - Aura [Recovered/Resolved]

NARRATIVE: CASE EVENT DATE: 20141209
